FAERS Safety Report 13417983 (Version 1)
Quarter: 2017Q2

REPORT INFORMATION
  Report Type: Spontaneous
  Country: FR (occurrence: FR)
  Receive Date: 20170407
  Receipt Date: 20170407
  Transmission Date: 20170830
  Serious: Yes (Other)
  Sender: FDA-Public Use
  Company Number: FR-009507513-1704FRA002314

PATIENT
  Age: 70 Year
  Sex: Male

DRUGS (2)
  1. AMIKACIN [Suspect]
     Active Substance: AMIKACIN
     Indication: PYELONEPHRITIS
     Dosage: 1 DF, QD
     Route: 041
     Dates: start: 20170311, end: 20170313
  2. IMIPENEM AND CILASTATIN [Suspect]
     Active Substance: CILASTATIN SODIUM\IMIPENEM
     Indication: PYELONEPHRITIS
     Dosage: UNK
     Route: 041
     Dates: start: 20170311, end: 20170313

REACTIONS (1)
  - Purpura [Recovered/Resolved]

NARRATIVE: CASE EVENT DATE: 20170313
